FAERS Safety Report 5755614-3 (Version None)
Quarter: 2008Q2

REPORT INFORMATION
  Report Type: 
  Country: None (occurrence: None)
  Receive Date: 20080602
  Receipt Date: 20080520
  Transmission Date: 20081010
  Serious: Yes (Disabling)
  Sender: FDA-Public Use
  Company Number: US-MERCK-0805USA04622

PATIENT
  Age: 50 Year
  Sex: Female
  Weight: 75 kg

DRUGS (8)
  1. SINGULAIR [Suspect]
     Route: 048
     Dates: start: 20050101, end: 20080101
  2. PROZAC [Concomitant]
     Route: 048
  3. DOC TRAZODONE [Concomitant]
     Route: 048
  4. TYLENOL W/ CODEINE NO. 3 [Concomitant]
     Route: 048
  5. TYLENOL W/ CODEINE NO. 3 [Concomitant]
     Route: 048
  6. IBUPROFEN [Concomitant]
     Route: 065
  7. [THERAPY UNSPECIFIED] [Concomitant]
     Route: 065
  8. ACCOLATE [Concomitant]
     Route: 065
     Dates: start: 20000101

REACTIONS (2)
  - HYPERGAMMAGLOBULINAEMIA BENIGN MONOCLONAL [None]
  - OVERDOSE [None]
